FAERS Safety Report 20415185 (Version 10)
Quarter: 2022Q4

REPORT INFORMATION
  Report Type: Spontaneous
  Country: GB (occurrence: GB)
  Receive Date: 20220202
  Receipt Date: 20221205
  Transmission Date: 20230113
  Serious: Yes (Other)
  Sender: FDA-Public Use
  Company Number: None

PATIENT
  Age: 54 Year
  Sex: Male

DRUGS (311)
  1. ACETAMINOPHEN [Suspect]
     Active Substance: ACETAMINOPHEN
     Indication: Ill-defined disorder
     Dosage: 20 MILLIGRAM, BID, SOLUBLE TABLET
     Route: 065
     Dates: start: 2006
  2. ACETAMINOPHEN [Suspect]
     Active Substance: ACETAMINOPHEN
     Indication: Pneumonia
     Dosage: 50 ML (50 UNITS/50ML), SOLUBLE TABLET
     Route: 042
     Dates: start: 2006
  3. ACETAMINOPHEN [Suspect]
     Active Substance: ACETAMINOPHEN
     Dosage: 50 UNITS/VIAL
     Route: 065
     Dates: start: 2006
  4. ALBUTEROL [Suspect]
     Active Substance: ALBUTEROL
     Indication: Ill-defined disorder
     Dosage: 1 DOSAGE FORM (NEBULISER)
     Route: 065
  5. ALBUTEROL [Suspect]
     Active Substance: ALBUTEROL
     Dosage: UNK
     Route: 065
  6. ALBUTEROL [Suspect]
     Active Substance: ALBUTEROL
     Dosage: UNK
     Route: 065
     Dates: start: 2006
  7. ALBUTEROL [Suspect]
     Active Substance: ALBUTEROL
     Dosage: UNK, PRN
     Route: 065
  8. ALBUTEROL [Suspect]
     Active Substance: ALBUTEROL
     Dosage: 1 DOSAGE FORM, PRN
     Route: 065
     Dates: start: 2006
  9. ENOXAPARIN SODIUM [Suspect]
     Active Substance: ENOXAPARIN SODIUM
     Indication: Pneumonia
     Dosage: 20 MILLIGRAM, QD
     Route: 058
  10. ENOXAPARIN SODIUM [Suspect]
     Active Substance: ENOXAPARIN SODIUM
     Indication: Ill-defined disorder
     Dosage: 20 MILLIGRAM, QD
     Route: 058
  11. ENOXAPARIN SODIUM [Suspect]
     Active Substance: ENOXAPARIN SODIUM
     Dosage: 20 MILLIGRAM, QD
     Route: 065
  12. ENOXAPARIN SODIUM [Suspect]
     Active Substance: ENOXAPARIN SODIUM
     Dosage: 20 MILLIGRAM, QD
     Route: 058
     Dates: start: 2006
  13. ENOXAPARIN SODIUM [Suspect]
     Active Substance: ENOXAPARIN SODIUM
     Dosage: 20 MILLIGRAM, QD
     Route: 058
     Dates: start: 2006
  14. TRICLOSAN [Suspect]
     Active Substance: TRICLOSAN
     Indication: Ill-defined disorder
     Dosage: UNK
     Route: 003
  15. TRICLOSAN [Suspect]
     Active Substance: TRICLOSAN
     Indication: Pneumonia
     Dosage: UNK, CUTANEOUS SOLUTION
     Route: 065
  16. TRICLOSAN [Suspect]
     Active Substance: TRICLOSAN
     Dosage: 1 GRAM, QD
     Route: 042
  17. TRICLOSAN [Suspect]
     Active Substance: TRICLOSAN
     Dosage: 24 DOSAGE FORM, CUTANEOUS SOLUTION
     Route: 065
     Dates: start: 2006
  18. LANSOPRAZOLE [Suspect]
     Active Substance: LANSOPRAZOLE
     Indication: Ill-defined disorder
     Dosage: 3 GRAM, EVERY HOUR, CAPSULE
     Route: 042
  19. LANSOPRAZOLE [Suspect]
     Active Substance: LANSOPRAZOLE
     Indication: Pneumonia
     Dosage: 3 MILLIGRAM, UNK
     Route: 065
  20. LANSOPRAZOLE [Suspect]
     Active Substance: LANSOPRAZOLE
     Dosage: 30 MILLIGRAM, QD
     Route: 065
     Dates: start: 2006
  21. LANSOPRAZOLE [Suspect]
     Active Substance: LANSOPRAZOLE
     Dosage: 10 MILLILITER, UNK
     Route: 065
     Dates: start: 2006
  22. LANSOPRAZOLE [Suspect]
     Active Substance: LANSOPRAZOLE
     Dosage: 30 MILLIGRAM, QD
     Route: 065
     Dates: start: 2006
  23. SILVER SULFADIAZINE [Suspect]
     Active Substance: SILVER SULFADIAZINE
     Indication: Ill-defined disorder
     Dosage: UNK
     Route: 061
     Dates: start: 2006
  24. SILVER SULFADIAZINE [Suspect]
     Active Substance: SILVER SULFADIAZINE
     Dosage: UNK
     Route: 061
     Dates: start: 2006
  25. FUROSEMIDE [Suspect]
     Active Substance: FUROSEMIDE
     Indication: Ill-defined disorder
     Dosage: 20 MILLIGRAM, QD
     Route: 048
  26. FUROSEMIDE [Suspect]
     Active Substance: FUROSEMIDE
     Indication: Pneumonia
     Dosage: UNK
     Route: 042
  27. FUROSEMIDE [Suspect]
     Active Substance: FUROSEMIDE
     Dosage: 20 MILLIGRAM, BID (2 XDAILY)
     Route: 042
     Dates: start: 2006
  28. FUROSEMIDE [Suspect]
     Active Substance: FUROSEMIDE
     Dosage: 20 MILLIGRAM, BID (2 XDAILY)
     Route: 042
     Dates: start: 2006
  29. FUROSEMIDE [Suspect]
     Active Substance: FUROSEMIDE
     Dosage: 20 MILLIGRAM, BID
     Route: 042
     Dates: start: 2006
  30. FUROSEMIDE [Suspect]
     Active Substance: FUROSEMIDE
     Dosage: 20 MILLIGRAM, QD
     Route: 048
     Dates: start: 2006
  31. FUROSEMIDE [Suspect]
     Active Substance: FUROSEMIDE
     Dosage: 40 MILLIGRAM, QD
     Route: 042
  32. LORAZEPAM [Suspect]
     Active Substance: LORAZEPAM
     Indication: Product used for unknown indication
     Dosage: 2 MILLIGRAM, QD
     Route: 065
  33. LORAZEPAM [Suspect]
     Active Substance: LORAZEPAM
     Indication: Pneumonia
     Dosage: 2 MILLIGRAM, QD
     Route: 065
  34. LORAZEPAM [Suspect]
     Active Substance: LORAZEPAM
     Indication: Ill-defined disorder
     Dosage: (1-2 MILLIGRAM, ONCE ONLY)
     Route: 065
     Dates: start: 2006
  35. LORAZEPAM [Suspect]
     Active Substance: LORAZEPAM
     Dosage: (1-2 MILLIGRAM, ONCE ONLY)
     Route: 065
     Dates: start: 2006
  36. AMOXICILLIN [Suspect]
     Active Substance: AMOXICILLIN
     Indication: Ill-defined disorder
     Dosage: 1 GRAM, TID
     Route: 042
     Dates: start: 20060913
  37. AMOXICILLIN [Suspect]
     Active Substance: AMOXICILLIN
     Indication: Pneumonia
     Dosage: 250 MILLIGRAM, UNK
     Route: 048
     Dates: start: 20060913
  38. AMOXICILLIN [Suspect]
     Active Substance: AMOXICILLIN
     Dosage: 3 GRAM, QD (1 GRAM, TID)
     Route: 042
  39. AMOXICILLIN [Suspect]
     Active Substance: AMOXICILLIN
     Dosage: 750 MILLIGRAM, TID
     Route: 048
  40. AMOXICILLIN [Suspect]
     Active Substance: AMOXICILLIN
     Dosage: 1 GRAM, TID
     Route: 042
     Dates: start: 20060913
  41. AMOXICILLIN [Suspect]
     Active Substance: AMOXICILLIN
     Dosage: 250 MILLIGRAM, UNK
     Route: 048
     Dates: start: 20060913
  42. AMOXICILLIN [Suspect]
     Active Substance: AMOXICILLIN
     Dosage: 1 GRAM, QD
     Route: 042
  43. AMOXICILLIN [Suspect]
     Active Substance: AMOXICILLIN
     Dosage: 1 G, TIME INTERVAL
     Route: 042
     Dates: start: 20060913
  44. AMOXICILLIN [Suspect]
     Active Substance: AMOXICILLIN
     Dosage: 3 GRAM, QD, (3 G, QD, 1 G 3/1 DAYS)
     Route: 042
  45. AMOXICILLIN [Suspect]
     Active Substance: AMOXICILLIN
     Dosage: 3 GRAM, QD, (1 G,TID (DAILY DOSE: 3 GRAM(S), 1 G, TID), (0.33 DAY)
     Route: 042
     Dates: start: 20060913
  46. AMOXICILLIN [Suspect]
     Active Substance: AMOXICILLIN
     Dosage: 250 MILLIGRAM, QD
     Route: 042
  47. AMOXICILLIN [Suspect]
     Active Substance: AMOXICILLIN
     Dosage: 250 MILLIGRAM, TID
     Route: 048
     Dates: start: 20060913
  48. AMOXICILLIN [Suspect]
     Active Substance: AMOXICILLIN
     Dosage: 3 GRAM, TID
     Route: 042
  49. AMOXICILLIN [Suspect]
     Active Substance: AMOXICILLIN
     Dosage: 3 GRAM, QD (1 G, TID)
     Route: 042
     Dates: start: 20060913
  50. AMOXICILLIN [Suspect]
     Active Substance: AMOXICILLIN
     Dosage: 1 GRAM, QD
     Route: 042
  51. AMOXICILLIN [Suspect]
     Active Substance: AMOXICILLIN
     Dosage: 750 MILLIGRAM, QD
     Route: 048
     Dates: start: 20060913
  52. AMOXICILLIN [Suspect]
     Active Substance: AMOXICILLIN
     Dosage: 250 MILLIGRAM, TID
     Route: 048
     Dates: start: 20060913
  53. DOBUTAMINE [Suspect]
     Active Substance: DOBUTAMINE HYDROCHLORIDE
     Indication: Ill-defined disorder
     Dosage: UNK
     Route: 041
     Dates: start: 2006
  54. DOBUTAMINE [Suspect]
     Active Substance: DOBUTAMINE HYDROCHLORIDE
     Dosage: UNK
     Route: 065
     Dates: start: 2006
  55. INSULIN HUMAN [Suspect]
     Active Substance: INSULIN HUMAN
     Indication: Pneumonia
     Dosage: UNK (SOLUTION FOR INFUSION)
     Route: 065
  56. INSULIN HUMAN [Suspect]
     Active Substance: INSULIN HUMAN
     Indication: Toxic epidermal necrolysis
     Dosage: 50ML, INTRAVENOUS INFUSION
     Route: 042
  57. INSULIN HUMAN [Suspect]
     Active Substance: INSULIN HUMAN
     Dosage: UNK (INFUSION)
     Route: 042
  58. INSULIN HUMAN [Suspect]
     Active Substance: INSULIN HUMAN
     Dosage: UNK, SOLUTION FOR INFUSION
     Route: 065
  59. INSULIN HUMAN [Suspect]
     Active Substance: INSULIN HUMAN
     Dosage: UNK (SOLUTION FOR INFUSION)
     Route: 042
     Dates: start: 2006
  60. INSULIN HUMAN [Suspect]
     Active Substance: INSULIN HUMAN
     Dosage: UNK
     Route: 042
  61. SODIUM CHLORIDE [Suspect]
     Active Substance: SODIUM CHLORIDE
     Indication: Ill-defined disorder
     Dosage: 0.9 PERCENT, QD
     Route: 042
     Dates: start: 2006
  62. SODIUM CHLORIDE [Suspect]
     Active Substance: SODIUM CHLORIDE
     Indication: Pneumonia
     Dosage: 1 PERCENT, QD
     Route: 042
     Dates: start: 2006
  63. ALFENTANIL [Suspect]
     Active Substance: ALFENTANIL
     Indication: Ill-defined disorder
     Dosage: UNK, INFUSION
     Route: 042
  64. ALFENTANIL [Suspect]
     Active Substance: ALFENTANIL
     Indication: Pneumonia
     Dosage: UNK, INFUSION
     Route: 042
  65. ALFENTANIL [Suspect]
     Active Substance: ALFENTANIL
     Dosage: 120 DOSAGE FORM, INFUSION
     Route: 065
  66. ALFENTANIL [Suspect]
     Active Substance: ALFENTANIL
     Dosage: UNK, INFUSION
     Route: 042
  67. ALFENTANIL [Suspect]
     Active Substance: ALFENTANIL
     Dosage: UNK, INFUSION
     Route: 042
  68. ALFENTANIL [Suspect]
     Active Substance: ALFENTANIL
     Dosage: UNK, INFUSION
     Route: 042
  69. ALFENTANIL [Suspect]
     Active Substance: ALFENTANIL
     Dosage: UNK, INFUSION
     Route: 065
  70. ALFENTANIL [Suspect]
     Active Substance: ALFENTANIL
     Dosage: UNK, INFUSION
     Route: 042
  71. ALFENTANIL [Suspect]
     Active Substance: ALFENTANIL
     Dosage: UNK, INFUSION
     Route: 042
  72. ALFENTANIL [Suspect]
     Active Substance: ALFENTANIL
     Dosage: UNK, INFUSION
     Route: 042
     Dates: start: 2006
  73. ALFENTANIL [Suspect]
     Active Substance: ALFENTANIL
     Dosage: 120 DOSAGE FORM, INFUSION
     Route: 042
     Dates: start: 2006
  74. ALFENTANIL [Suspect]
     Active Substance: ALFENTANIL
     Dosage: UNK, INJECTION
     Route: 042
     Dates: start: 2006
  75. ALFENTANIL [Suspect]
     Active Substance: ALFENTANIL
     Dosage: UNK, INFUSION
     Route: 042
     Dates: start: 2006
  76. OMEPRAZOLE [Suspect]
     Active Substance: OMEPRAZOLE
     Indication: Pneumonia
     Dosage: 40 MILLIGRAM, UNK
     Route: 042
  77. OMEPRAZOLE [Suspect]
     Active Substance: OMEPRAZOLE
     Dosage: 40 MILLIGRAM, UNK
     Route: 042
  78. OMEPRAZOLE [Suspect]
     Active Substance: OMEPRAZOLE
     Dosage: 40 MILLIGRAM, QD ((40 MG,UNK (DAILY DOSE: 40 MILLIGRAM(S))
     Route: 042
     Dates: start: 2006
  79. OMEPRAZOLE [Suspect]
     Active Substance: OMEPRAZOLE
     Dosage: 40 MILLIGRAM, UNK
     Route: 042
     Dates: start: 2006
  80. CALCIUM GLUCONATE [Suspect]
     Active Substance: CALCIUM GLUCONATE
     Indication: Pneumonia
     Dosage: UNK
     Route: 065
  81. CALCIUM GLUCONATE [Suspect]
     Active Substance: CALCIUM GLUCONATE
     Indication: Product used for unknown indication
     Dosage: 10 MILLILITER, QD
     Route: 042
     Dates: start: 2006
  82. CALCIUM GLUCONATE [Suspect]
     Active Substance: CALCIUM GLUCONATE
     Dosage: 10 MILLILITER, QD
     Route: 042
     Dates: start: 2006
  83. CALCIUM GLUCONATE [Suspect]
     Active Substance: CALCIUM GLUCONATE
     Dosage: 10 MILLILITER, UNK
     Route: 042
     Dates: start: 2006
  84. CALCIUM GLUCONATE [Suspect]
     Active Substance: CALCIUM GLUCONATE
     Dosage: 10 MILLILITER, UNK
     Route: 042
     Dates: start: 2006
  85. PROPOFOL [Suspect]
     Active Substance: PROPOFOL
     Indication: Pneumonia
     Dosage: UNK
     Route: 042
     Dates: start: 2006
  86. FRAGMIN [Suspect]
     Active Substance: DALTEPARIN SODIUM
     Indication: Ill-defined disorder
     Dosage: UNK
     Route: 065
  87. FRAGMIN [Suspect]
     Active Substance: DALTEPARIN SODIUM
     Indication: Pneumonia
     Dosage: 2500 INTERNATIONAL UNIT, QD
     Route: 058
  88. FRAGMIN [Suspect]
     Active Substance: DALTEPARIN SODIUM
     Dosage: 200 INTERNATIONAL UNIT, 2500 IU DAILY
     Route: 058
  89. FRAGMIN [Suspect]
     Active Substance: DALTEPARIN SODIUM
     Dosage: 2500 INTERNATIONAL UNIT, QD
     Route: 058
  90. FRAGMIN [Suspect]
     Active Substance: DALTEPARIN SODIUM
     Dosage: 200 INTERNATIONAL UNIT, QD
     Route: 058
     Dates: start: 2006
  91. FRAGMIN [Suspect]
     Active Substance: DALTEPARIN SODIUM
     Dosage: 200 INTERNATIONAL UNIT, QD
     Route: 058
     Dates: start: 2006
  92. FRAGMIN [Suspect]
     Active Substance: DALTEPARIN SODIUM
     Dosage: 2500 INTERNATIONAL UNIT, QD
     Route: 058
     Dates: start: 2006
  93. FRAGMIN [Suspect]
     Active Substance: DALTEPARIN SODIUM
     Dosage: 2500 INTERNATIONAL UNIT, QD
     Route: 058
     Dates: start: 2006
  94. FRAGMIN [Suspect]
     Active Substance: DALTEPARIN SODIUM
     Dosage: 200 INTERNATIONAL UNIT, QD
     Route: 058
     Dates: start: 2006
  95. MAGNESIUM SULFATE [Suspect]
     Active Substance: MAGNESIUM SULFATE
     Indication: Ill-defined disorder
     Dosage: 10ML / 50%, 8 MMOL / 50ML
     Route: 061
  96. MAGNESIUM SULFATE [Suspect]
     Active Substance: MAGNESIUM SULFATE
     Indication: Pneumonia
     Dosage: 10ML / 50%, 8 MMOL / 50ML
     Route: 065
     Dates: start: 2006
  97. MAGNESIUM SULFATE [Suspect]
     Active Substance: MAGNESIUM SULFATE
     Dosage: 10 MILLILITER, INFUSION 10 ML/50% 8 MMOLS/50ML
     Route: 065
     Dates: start: 2006
  98. VITAMIN K1 [Suspect]
     Active Substance: PHYTONADIONE
     Indication: Pneumonia
     Dosage: UNK
     Route: 065
  99. VITAMIN K1 [Suspect]
     Active Substance: PHYTONADIONE
     Indication: Ill-defined disorder
     Dosage: UNK
     Route: 065
     Dates: start: 2006
  100. FLUCONAZOLE [Suspect]
     Active Substance: FLUCONAZOLE
     Indication: Ill-defined disorder
     Dosage: UNK
     Route: 065
  101. FLUCONAZOLE [Suspect]
     Active Substance: FLUCONAZOLE
     Indication: Pneumonia
     Dosage: 200 MILLIGRAM, QD
     Route: 042
  102. FLUCONAZOLE [Suspect]
     Active Substance: FLUCONAZOLE
     Dosage: 20 MILLIGRAM, QD
     Route: 065
  103. FLUCONAZOLE [Suspect]
     Active Substance: FLUCONAZOLE
     Dosage: 200 MILLIGRAM, QD
     Route: 042
     Dates: start: 2006
  104. FLUCONAZOLE [Suspect]
     Active Substance: FLUCONAZOLE
     Dosage: 200 MILLIGRAM, QD
     Route: 065
     Dates: start: 2006
  105. INNOHEP [Suspect]
     Active Substance: TINZAPARIN SODIUM
     Indication: Pneumonia
     Dosage: 3.5 MILLILITER, QD
     Route: 065
  106. INNOHEP [Suspect]
     Active Substance: TINZAPARIN SODIUM
     Indication: Ill-defined disorder
     Dosage: 4 MILLIGRAM, QD
     Route: 065
  107. INNOHEP [Suspect]
     Active Substance: TINZAPARIN SODIUM
     Dosage: 3500 MICROGRAM, QD (DAILY)
     Route: 065
     Dates: start: 2006
  108. INNOHEP [Suspect]
     Active Substance: TINZAPARIN SODIUM
     Dosage: 3500 DOSAGE FORM, QD
     Route: 065
     Dates: start: 2006
  109. LACTULOSE [Suspect]
     Active Substance: LACTULOSE
     Indication: Ill-defined disorder
     Dosage: 1 MILLILITER, QD
     Route: 065
  110. LACTULOSE [Suspect]
     Active Substance: LACTULOSE
     Indication: Pneumonia
     Dosage: 10 MILLILITER, QD
     Route: 065
  111. LACTULOSE [Suspect]
     Active Substance: LACTULOSE
     Dosage: 10 MILLILITER, UNK
     Route: 065
     Dates: start: 2006
  112. LACTULOSE [Suspect]
     Active Substance: LACTULOSE
     Dosage: 10 MILLILITER, UNK
     Route: 050
     Dates: start: 2006
  113. CALCIUM CHLORIDE [Suspect]
     Active Substance: CALCIUM CHLORIDE
     Indication: Ill-defined disorder
     Dosage: UNK
     Route: 065
  114. CALCIUM CHLORIDE [Suspect]
     Active Substance: CALCIUM CHLORIDE
     Indication: Pneumonia
     Dosage: 10 MILLILITER, QID
     Route: 065
     Dates: start: 2006
  115. BACTROBAN [Suspect]
     Active Substance: MUPIROCIN\MUPIROCIN CALCIUM
     Indication: Ill-defined disorder
     Dosage: UNK, 50 UNITS/50ML
     Route: 042
     Dates: start: 2006
  116. BACTROBAN [Suspect]
     Active Substance: MUPIROCIN\MUPIROCIN CALCIUM
     Indication: Pneumonia
     Dosage: UNK, (10ML/50% 8MMOLS/50MLS)
     Route: 065
     Dates: start: 2006
  117. BACTROBAN [Suspect]
     Active Substance: MUPIROCIN\MUPIROCIN CALCIUM
     Dosage: UNK, OINTMENT
     Route: 065
     Dates: start: 2006
  118. BACTROBAN [Suspect]
     Active Substance: MUPIROCIN\MUPIROCIN CALCIUM
     Dosage: UNK, OINTMENT
     Route: 065
     Dates: start: 2006
  119. BACTROBAN [Suspect]
     Active Substance: MUPIROCIN\MUPIROCIN CALCIUM
     Dosage: UNK, OINTMENT
     Route: 065
     Dates: start: 2006
  120. BACTROBAN [Suspect]
     Active Substance: MUPIROCIN\MUPIROCIN CALCIUM
     Dosage: UNK, (10ML/50% 8MMOLS/50MLS)
     Route: 065
     Dates: start: 2006
  121. SIMVASTATIN [Suspect]
     Active Substance: SIMVASTATIN
     Indication: Ill-defined disorder
     Dosage: 40 MILLIGRAM, BID, FILM-COATED TABLET
     Route: 042
     Dates: start: 2006
  122. CHLORPHENIRAMINE MALEATE [Suspect]
     Active Substance: CHLORPHENIRAMINE MALEATE
     Indication: Ill-defined disorder
     Dosage: 10 MILLIGRAM, QID
     Route: 042
  123. CHLORPHENIRAMINE MALEATE [Suspect]
     Active Substance: CHLORPHENIRAMINE MALEATE
     Indication: Pneumonia
     Dosage: 10 MILLIGRAM, QD
     Route: 042
     Dates: start: 2006
  124. CHLORPHENIRAMINE MALEATE [Suspect]
     Active Substance: CHLORPHENIRAMINE MALEATE
     Dosage: UNK
     Route: 065
  125. CHLORPHENIRAMINE MALEATE [Suspect]
     Active Substance: CHLORPHENIRAMINE MALEATE
     Dosage: 10 MILLIGRAM, QD
     Route: 042
     Dates: start: 2006
  126. CHLORPHENIRAMINE MALEATE [Suspect]
     Active Substance: CHLORPHENIRAMINE MALEATE
     Dosage: 40 MILLIGRAM, QD
     Route: 042
  127. CHLORPHENIRAMINE MALEATE [Suspect]
     Active Substance: CHLORPHENIRAMINE MALEATE
     Dosage: 10 MILLIGRAM, QID
     Route: 042
     Dates: start: 2006
  128. SODIUM BICARBONATE [Suspect]
     Active Substance: SODIUM BICARBONATE
     Indication: Pneumonia
     Dosage: 100 MILLIGRAM, EVERY HOUR
     Route: 042
     Dates: start: 2006
  129. SODIUM BICARBONATE [Suspect]
     Active Substance: SODIUM BICARBONATE
     Indication: Ill-defined disorder
  130. ROCEPHIN [Suspect]
     Active Substance: CEFTRIAXONE SODIUM
     Indication: Ill-defined disorder
     Dosage: 2 MILLIGRAM, QD
     Route: 042
     Dates: start: 2006
  131. HEPARIN CALCIUM [Suspect]
     Active Substance: HEPARIN CALCIUM
     Indication: Ill-defined disorder
     Dosage: UNK
     Route: 065
  132. HEPARIN CALCIUM [Suspect]
     Active Substance: HEPARIN CALCIUM
     Dosage: UNK
     Route: 065
     Dates: start: 2006
  133. POTASSIUM CHLORIDE [Suspect]
     Active Substance: POTASSIUM CHLORIDE
     Indication: Pneumonia
     Dosage: 2 DOSAGE FORM, QD
     Route: 065
     Dates: start: 2006
  134. POTASSIUM CHLORIDE [Suspect]
     Active Substance: POTASSIUM CHLORIDE
     Indication: Ill-defined disorder
     Dosage: 6 DOSAGE FORM, QD
     Route: 061
     Dates: start: 2006
  135. POTASSIUM CHLORIDE [Suspect]
     Active Substance: POTASSIUM CHLORIDE
     Dosage: 6 DOSAGE FORM, QD, 2 DF 3 X DAILY
     Route: 065
     Dates: start: 2006
  136. CHLORPHENIRAMINE [Suspect]
     Active Substance: CHLORPHENIRAMINE
     Indication: Pneumonia
     Dosage: 10 MILLIGRAM, QD, 4 X DAILY
     Route: 042
     Dates: start: 2006
  137. CHLORPHENIRAMINE [Suspect]
     Active Substance: CHLORPHENIRAMINE
     Indication: Toxic epidermal necrolysis
     Dosage: 10 MILLIGRAM, QID
     Route: 042
     Dates: start: 2006
  138. CHLORPHENIRAMINE [Suspect]
     Active Substance: CHLORPHENIRAMINE
     Indication: Ill-defined disorder
     Dosage: 10 MILLIGRAM, QID (10 ML,Q6HR))
     Route: 042
     Dates: start: 2006
  139. CHLORPHENIRAMINE [Suspect]
     Active Substance: CHLORPHENIRAMINE
     Dosage: 10 MILLIGRAM, QD
     Route: 042
     Dates: start: 2006
  140. CHLORPHENIRAMINE [Suspect]
     Active Substance: CHLORPHENIRAMINE
     Dosage: 10 MILLIGRAM, QD
     Route: 042
  141. CHLORPHENIRAMINE [Suspect]
     Active Substance: CHLORPHENIRAMINE
     Dosage: 40 MILLIGRAM, QD (10 MG, QID)
     Route: 042
     Dates: start: 2006
  142. ENOXAPARIN [Suspect]
     Active Substance: ENOXAPARIN
     Indication: Product used for unknown indication
     Dosage: 20 MILLIGRAM, QD
     Route: 058
  143. ENOXAPARIN [Suspect]
     Active Substance: ENOXAPARIN
     Indication: Ill-defined disorder
     Dosage: UNK
     Route: 065
  144. ENOXAPARIN [Suspect]
     Active Substance: ENOXAPARIN
     Dosage: 20 MILLIGRAM, QD
     Route: 065
  145. ENOXAPARIN [Suspect]
     Active Substance: ENOXAPARIN
     Dosage: 20 MILLIGRAM, QD
     Route: 048
     Dates: start: 2006
  146. THIAMINE [Suspect]
     Active Substance: THIAMINE
     Indication: Ill-defined disorder
     Dosage: 100 MILLIGRAM, QD
     Route: 048
  147. THIAMINE [Suspect]
     Active Substance: THIAMINE
     Indication: Pneumonia
     Dosage: 100 MILLIGRAM, QD
     Route: 048
  148. THIAMINE [Suspect]
     Active Substance: THIAMINE
     Dosage: UNK
     Route: 065
  149. THIAMINE [Suspect]
     Active Substance: THIAMINE
     Dosage: 100 MILLIGRAM, QD
     Route: 048
  150. THIAMINE [Suspect]
     Active Substance: THIAMINE
     Dosage: 100 MILLIGRAM, TID
     Route: 048
  151. THIAMINE [Suspect]
     Active Substance: THIAMINE
     Dosage: 100 MILLIGRAM, QD
     Route: 048
     Dates: start: 2006
  152. POTASSIUM [Suspect]
     Active Substance: POTASSIUM
     Indication: Pneumonia
     Dosage: 6 DOSAGE FORM, QD
     Route: 065
  153. POTASSIUM [Suspect]
     Active Substance: POTASSIUM
     Dosage: 2 DOSAGE FORM, QD
     Route: 065
  154. POTASSIUM [Suspect]
     Active Substance: POTASSIUM
     Dosage: 2 DOSAGE FORM, TID
     Route: 061
     Dates: start: 2006
  155. HYDROCORTISONE [Suspect]
     Active Substance: HYDROCORTISONE
     Indication: Ill-defined disorder
     Dosage: 100 MILLIGRAM, QD
     Route: 042
     Dates: start: 2006
  156. HYDROCORTISONE [Suspect]
     Active Substance: HYDROCORTISONE
     Indication: Pneumonia
     Dosage: UNK
     Route: 065
     Dates: start: 2006
  157. CEFTRIAXONE [Suspect]
     Active Substance: CEFTRIAXONE
     Indication: Ill-defined disorder
     Dosage: UNK, POWDER FOR INJECTION
     Route: 065
  158. CEFTRIAXONE [Suspect]
     Active Substance: CEFTRIAXONE
     Indication: Pneumonia
     Dosage: 2 GRAM, POWDER FOR INJECTION
     Route: 042
  159. CEFTRIAXONE [Suspect]
     Active Substance: CEFTRIAXONE
     Dosage: 2 GRAM, POWDER AND SOLVENT FOR SOLUTION FOR INFUSION
     Route: 042
     Dates: start: 2006
  160. CEFTRIAXONE [Suspect]
     Active Substance: CEFTRIAXONE
     Dosage: 2 GRAM, QD, POWDER FOR INJECTION
     Route: 042
     Dates: start: 2006
  161. CEFTRIAXONE [Suspect]
     Active Substance: CEFTRIAXONE
     Dosage: 2 GRAM, POWDER FOR INJECTION
     Route: 042
     Dates: start: 2006
  162. TRICLOSAN [Suspect]
     Active Substance: TRICLOSAN
     Indication: Ill-defined disorder
     Dosage: UNK
     Route: 065
  163. TRICLOSAN [Suspect]
     Active Substance: TRICLOSAN
     Dosage: UNK
     Route: 065
     Dates: start: 2006
  164. TRICLOSAN [Suspect]
     Active Substance: TRICLOSAN
     Dosage: UNK
     Route: 065
     Dates: start: 2006
  165. TRICLOSAN [Suspect]
     Active Substance: TRICLOSAN
     Dosage: UNK
     Route: 065
     Dates: start: 2006
  166. HEPARIN SODIUM [Suspect]
     Active Substance: HEPARIN SODIUM
     Indication: Ill-defined disorder
     Dosage: 3500 MICROGRAM, QD
     Route: 065
  167. HEPARIN SODIUM [Suspect]
     Active Substance: HEPARIN SODIUM
     Indication: Product used for unknown indication
     Dosage: 3500 MICROGRAM, QD
     Route: 065
  168. HEPARIN SODIUM [Suspect]
     Active Substance: HEPARIN SODIUM
     Dosage: 3500 MICROGRAM, QD
     Route: 065
  169. CANRENOATE POTASSIUM [Suspect]
     Active Substance: CANRENOATE POTASSIUM
     Indication: Ill-defined disorder
     Dosage: UNK
     Route: 065
  170. ASPIRIN [Suspect]
     Active Substance: ASPIRIN
     Indication: Ill-defined disorder
     Dosage: UNK
     Route: 048
  171. ASPIRIN [Suspect]
     Active Substance: ASPIRIN
     Dosage: UNK, EFFERVESCENT TABLET
     Route: 048
  172. ANHYDROUS CITRIC ACID [Suspect]
     Active Substance: ANHYDROUS CITRIC ACID
     Indication: Product used for unknown indication
     Dosage: 100 MILLIGRAM, QD
     Route: 048
  173. ANHYDROUS CITRIC ACID [Suspect]
     Active Substance: ANHYDROUS CITRIC ACID
     Indication: Ill-defined disorder
     Dosage: 100 MILLIGRAM, QD
     Route: 048
  174. ANHYDROUS CITRIC ACID [Suspect]
     Active Substance: ANHYDROUS CITRIC ACID
     Dosage: 100 MILLIGRAM, QD
     Route: 048
     Dates: start: 2006
  175. ANHYDROUS CITRIC ACID [Suspect]
     Active Substance: ANHYDROUS CITRIC ACID
     Dosage: 100 MILLIGRAM, QD
     Route: 048
     Dates: start: 2006
  176. ANHYDROUS CITRIC ACID [Suspect]
     Active Substance: ANHYDROUS CITRIC ACID
     Dosage: 100 MILLIGRAM, QD
     Route: 048
     Dates: start: 2006
  177. MUPIROCIN [Suspect]
     Active Substance: MUPIROCIN
     Indication: Ill-defined disorder
     Dosage: UNK
     Route: 065
     Dates: start: 2006
  178. MUPIROCIN [Suspect]
     Active Substance: MUPIROCIN
     Indication: Pneumonia
     Dosage: UNK (10ML/50% 8MMOLS/50MLS)
     Route: 065
     Dates: start: 2006
  179. NOREPINEPHRINE [Suspect]
     Active Substance: NOREPINEPHRINE
     Indication: Ill-defined disorder
     Dosage: UNK
     Route: 065
  180. NOREPINEPHRINE [Suspect]
     Active Substance: NOREPINEPHRINE
     Indication: Pneumonia
     Dosage: UNK
     Route: 065
     Dates: start: 2006
  181. NOREPINEPHRINE [Suspect]
     Active Substance: NOREPINEPHRINE
     Dosage: UNK UNK, QD
     Route: 065
     Dates: start: 2006
  182. ERYTHROMYCIN [Suspect]
     Active Substance: ERYTHROMYCIN
     Indication: Ill-defined disorder
     Dosage: 250 MILLIGRAM QD
     Route: 050
  183. CIPROFLOXACIN [Suspect]
     Active Substance: CIPROFLOXACIN
     Indication: Ill-defined disorder
     Dosage: 400 MILLIGRAM, QD
     Route: 042
  184. CIPROFLOXACIN [Suspect]
     Active Substance: CIPROFLOXACIN
     Indication: Pneumonia
     Dosage: 400 MILLIGRAM, QD
     Route: 042
  185. CIPROFLOXACIN [Suspect]
     Active Substance: CIPROFLOXACIN
     Dosage: 400 MILLIGRAM, QD
     Route: 042
  186. CIPROFLOXACIN [Suspect]
     Active Substance: CIPROFLOXACIN
     Dosage: UNK
     Route: 065
  187. DALTEPARIN SODIUM [Suspect]
     Active Substance: DALTEPARIN SODIUM
     Indication: Product used for unknown indication
     Dosage: UNK, QD
     Route: 065
  188. DALTEPARIN SODIUM [Suspect]
     Active Substance: DALTEPARIN SODIUM
     Indication: Ill-defined disorder
     Dosage: 2500 INTERNATIONAL UNIT, QD
     Route: 065
     Dates: start: 2006
  189. DALTEPARIN SODIUM [Suspect]
     Active Substance: DALTEPARIN SODIUM
     Dosage: 200 INTERNATIONAL UNIT, QD
     Route: 065
     Dates: start: 2006
  190. DALTEPARIN SODIUM [Suspect]
     Active Substance: DALTEPARIN SODIUM
     Dosage: 2500 INTERNATIONAL UNIT
     Route: 058
     Dates: start: 2006
  191. DALTEPARIN SODIUM [Suspect]
     Active Substance: DALTEPARIN SODIUM
     Dosage: 2500 INTERNATIONAL UNIT
     Route: 058
     Dates: start: 2006
  192. DALTEPARIN SODIUM [Suspect]
     Active Substance: DALTEPARIN SODIUM
     Dosage: 2500 INTERNATIONAL UNIT
     Route: 058
     Dates: start: 2006
  193. MIDODRINE [Suspect]
     Active Substance: MIDODRINE
     Indication: Ill-defined disorder
     Dosage: UNK
     Route: 048
  194. MIDODRINE [Suspect]
     Active Substance: MIDODRINE
     Dosage: UNK
     Route: 065
  195. MIDODRINE [Suspect]
     Active Substance: MIDODRINE
     Dosage: UNK
     Route: 048
  196. HYDROCORTISONE HEMISUCCINATE ANHYDROUS [Suspect]
     Active Substance: HYDROCORTISONE HEMISUCCINATE ANHYDROUS
     Indication: Ill-defined disorder
     Dosage: 100 MILLIGRAM, TOTAL
     Route: 042
  197. HYDROCORTISONE HEMISUCCINATE ANHYDROUS [Suspect]
     Active Substance: HYDROCORTISONE HEMISUCCINATE ANHYDROUS
     Dosage: 100 MILLIGRAM, QD
     Route: 048
     Dates: start: 2006
  198. HYDROCORTISONE HEMISUCCINATE ANHYDROUS [Suspect]
     Active Substance: HYDROCORTISONE HEMISUCCINATE ANHYDROUS
     Dosage: 100 MILLIGRAM, TOTAL
     Route: 042
     Dates: start: 2006
  199. PHYTONADIONE [Suspect]
     Active Substance: PHYTONADIONE
     Indication: Ill-defined disorder
     Dosage: UNK
     Route: 065
  200. PHYTONADIONE [Suspect]
     Active Substance: PHYTONADIONE
     Indication: Pneumonia
     Dosage: UNK
     Route: 065
     Dates: start: 2006
  201. CALCIUM CHLORIDE HEXAHYDRATE [Suspect]
     Active Substance: CALCIUM CHLORIDE HEXAHYDRATE
     Indication: Pneumonia
     Dosage: UNK
     Route: 065
     Dates: start: 2006
  202. CITRIC ACID MONOHYDRATE\SODIUM BICARBONATE\TARTARIC ACID [Suspect]
     Active Substance: CITRIC ACID MONOHYDRATE\SODIUM BICARBONATE\TARTARIC ACID
     Indication: Pneumonia
     Dosage: 100 MILLIGRAM, QD
     Route: 048
     Dates: start: 2006
  203. HYDROCORTISONE SODIUM PHOSPHATE [Suspect]
     Active Substance: HYDROCORTISONE SODIUM PHOSPHATE
     Indication: Pneumonia
     Dosage: UNK
     Route: 065
  204. HYDROCORTISONE SODIUM PHOSPHATE [Suspect]
     Active Substance: HYDROCORTISONE SODIUM PHOSPHATE
     Indication: Ill-defined disorder
     Dosage: 100 MILLIGRAM, 1 DOSAGE TOTAL
     Route: 065
  205. HYDROCORTISONE SODIUM PHOSPHATE [Suspect]
     Active Substance: HYDROCORTISONE SODIUM PHOSPHATE
     Dosage: 100 MILLIGRAM
     Route: 048
  206. HYDROCORTISONE SODIUM PHOSPHATE [Suspect]
     Active Substance: HYDROCORTISONE SODIUM PHOSPHATE
     Dosage: 100 MILLIGRAM, TOTAL
     Route: 048
  207. HYDROCORTISONE SODIUM PHOSPHATE [Suspect]
     Active Substance: HYDROCORTISONE SODIUM PHOSPHATE
     Dosage: 100 MILLIGRAM, QD POWDER FOR SOLUTION FOR INJECTION
     Route: 042
  208. HYDROCORTISONE SODIUM PHOSPHATE [Suspect]
     Active Substance: HYDROCORTISONE SODIUM PHOSPHATE
     Dosage: 100 MILLIGRAM, UNK
     Route: 048
     Dates: start: 2006
  209. HYDROCORTISONE SODIUM PHOSPHATE [Suspect]
     Active Substance: HYDROCORTISONE SODIUM PHOSPHATE
     Dosage: 100 MILLIGRAM, TOTAL
     Route: 042
     Dates: start: 2006
  210. HYDROCORTISONE SODIUM PHOSPHATE [Suspect]
     Active Substance: HYDROCORTISONE SODIUM PHOSPHATE
     Dosage: UNK
     Route: 065
     Dates: start: 2006
  211. HYDROCORTISONE SODIUM PHOSPHATE [Suspect]
     Active Substance: HYDROCORTISONE SODIUM PHOSPHATE
     Dosage: 100 MILLIGRAM, TOTAL
     Route: 042
     Dates: start: 2006
  212. GLUTAMIC ACID [Suspect]
     Active Substance: GLUTAMIC ACID
     Indication: Ill-defined disorder
     Dosage: UNK
     Route: 065
  213. GLUTAMIC ACID [Suspect]
     Active Substance: GLUTAMIC ACID
     Dosage: 10 MILLILITER, QD
     Route: 065
     Dates: start: 2006
  214. INSULIN HUMAN [Suspect]
     Active Substance: INSULIN HUMAN
     Indication: Toxic epidermal necrolysis
     Dosage: UNK
     Route: 065
  215. INSULIN HUMAN [Suspect]
     Active Substance: INSULIN HUMAN
     Indication: Pneumonia
     Dosage: 50 UNITS/50 ML
     Route: 042
     Dates: start: 2006
  216. INSULIN HUMAN [Suspect]
     Active Substance: INSULIN HUMAN
     Indication: Product used for unknown indication
     Dosage: 50 UNITS/50 ML
     Route: 042
     Dates: start: 2006
  217. INSULIN HUMAN [Suspect]
     Active Substance: INSULIN HUMAN
     Dosage: 50 UNITS/50 ML
     Route: 042
     Dates: start: 2006
  218. RIBOFLAVIN [Suspect]
     Active Substance: RIBOFLAVIN
     Indication: Ill-defined disorder
     Dosage: UNK
     Route: 065
  219. NICOTINAMIDE [Suspect]
     Active Substance: NIACINAMIDE
     Indication: Ill-defined disorder
     Dosage: UNK
     Route: 065
  220. POTASSIUM PHOSPHATE, MONOBASIC [Suspect]
     Active Substance: POTASSIUM PHOSPHATE, MONOBASIC
     Indication: Ill-defined disorder
     Dosage: UNK
     Route: 065
     Dates: start: 2006
  221. POTASSIUM PHOSPHATE, MONOBASIC [Suspect]
     Active Substance: POTASSIUM PHOSPHATE, MONOBASIC
     Indication: Pneumonia
  222. MAGNESIUM HYDROXIDE [Suspect]
     Active Substance: MAGNESIUM HYDROXIDE
     Indication: Ill-defined disorder
     Dosage: UNK
     Route: 065
  223. MAGNESIUM HYDROXIDE [Suspect]
     Active Substance: MAGNESIUM HYDROXIDE
     Dosage: UNK, (10ML/50% 8MMOLS/50MLS)
     Route: 061
     Dates: start: 2006
  224. POTASSIUM IODIDE [Suspect]
     Active Substance: POTASSIUM IODIDE
     Indication: Pneumonia
     Dosage: UNK
     Route: 065
     Dates: start: 2006
  225. POTASSIUM [Suspect]
     Active Substance: POTASSIUM
     Indication: Product used for unknown indication
     Dosage: 6 DOSAGE FORM, QD
     Route: 065
  226. POTASSIUM [Suspect]
     Active Substance: POTASSIUM
     Dosage: 2 DOSAGE FORM, TID
     Route: 065
     Dates: start: 2006
  227. SILVER SULFADIAZINE [Suspect]
     Active Substance: SILVER SULFADIAZINE
     Indication: Ill-defined disorder
     Dosage: UNK
     Route: 061
  228. SILVER SULFADIAZINE [Suspect]
     Active Substance: SILVER SULFADIAZINE
     Indication: Pneumonia
     Dosage: UNK
     Route: 061
     Dates: start: 2006
  229. SILVER SULFADIAZINE [Suspect]
     Active Substance: SILVER SULFADIAZINE
     Dosage: UNK
     Route: 061
     Dates: start: 2006
  230. SULFADIAZINE [Suspect]
     Active Substance: SULFADIAZINE
     Indication: Ill-defined disorder
     Dosage: UNK
     Route: 061
  231. SULFADIAZINE [Suspect]
     Active Substance: SULFADIAZINE
     Dosage: UNK
     Route: 061
     Dates: start: 2006
  232. SULFADIAZINE [Suspect]
     Active Substance: SULFADIAZINE
     Dosage: UNK
     Route: 065
     Dates: start: 2006
  233. CANRENOIC ACID [Suspect]
     Active Substance: CANRENOIC ACID
     Indication: Ill-defined disorder
     Dosage: UNK
     Route: 065
  234. THIAMINE MONONITRATE [Suspect]
     Active Substance: THIAMINE MONONITRATE
     Indication: Pneumonia
     Dosage: UNK
     Route: 065
  235. THIAMINE MONONITRATE [Suspect]
     Active Substance: THIAMINE MONONITRATE
     Indication: Ill-defined disorder
     Dosage: 100 MILLIGRAM, QD
     Route: 048
     Dates: start: 2006
  236. ASPIRIN [Suspect]
     Active Substance: ASPIRIN
     Indication: Ill-defined disorder
     Dosage: UNK
     Route: 048
  237. AMOXICILLIN TRIHYDRATE [Suspect]
     Active Substance: AMOXICILLIN
     Indication: Pneumonia
     Dosage: UNK, CAPSULE, HARD
     Route: 065
  238. AMOXICILLIN TRIHYDRATE [Suspect]
     Active Substance: AMOXICILLIN
     Dosage: 1 GRAM, TID, CAPSULE HARD
     Route: 042
  239. AMOXICILLIN TRIHYDRATE [Suspect]
     Active Substance: AMOXICILLIN
     Dosage: 1 GRAM, TID (EVERY 8 HOURS)
     Route: 042
  240. AMOXICILLIN TRIHYDRATE [Suspect]
     Active Substance: AMOXICILLIN
     Dosage: 250 MILLIGRAM,TID CAPSULE HARD
     Route: 048
     Dates: start: 20060913
  241. AMOXICILLIN TRIHYDRATE [Suspect]
     Active Substance: AMOXICILLIN
     Dosage: 250 MILLIGRAM,TID POWDER FOR INJECTION
     Route: 042
     Dates: start: 20060913
  242. AMOXICILLIN TRIHYDRATE [Suspect]
     Active Substance: AMOXICILLIN
     Dosage: 250 MILLIGRAM, QD CAPSULE HARD
     Route: 048
     Dates: start: 20060913
  243. AMOXICILLIN TRIHYDRATE [Suspect]
     Active Substance: AMOXICILLIN
     Dosage: 3 GRAM, QD POWDER FOR INJECTION
     Route: 042
     Dates: start: 20060913
  244. AMOXICILLIN TRIHYDRATE [Suspect]
     Active Substance: AMOXICILLIN
     Dosage: 1 GRAM, TID POWDER FOR INJECTION
     Route: 042
     Dates: start: 20060913
  245. CITRIC ACID [Suspect]
     Active Substance: CITRIC ACID MONOHYDRATE
     Indication: Pneumonia
     Dosage: 100 MILLIGRAM, QD
     Route: 065
  246. CITRIC ACID [Suspect]
     Active Substance: CITRIC ACID MONOHYDRATE
     Indication: Ill-defined disorder
     Dosage: 100 MILLIGRAM, QD
     Route: 065
     Dates: start: 2006
  247. CALCIUM CHLORIDE [Suspect]
     Active Substance: CALCIUM CHLORIDE
     Indication: Ill-defined disorder
     Dosage: UNK, QD
     Route: 042
  248. CALCIUM CHLORIDE [Suspect]
     Active Substance: CALCIUM CHLORIDE
     Indication: Pneumonia
     Dosage: 120 DOSAGE FORM (10 ML,UNK (DAILY DOSE: 10 MILLILITRE(S))
     Route: 042
     Dates: start: 2006
  249. POTASSIUM PHOSPHATE, MONOBASIC [Suspect]
     Active Substance: POTASSIUM PHOSPHATE, MONOBASIC
     Indication: Pneumonia
     Dosage: UNK
     Route: 065
     Dates: start: 2006
  250. ERYTHROMYCIN STEARATE [Suspect]
     Active Substance: ERYTHROMYCIN STEARATE
     Indication: Ill-defined disorder
     Dosage: UNK
     Route: 065
  251. SODIUM BICARBONATE [Suspect]
     Active Substance: SODIUM BICARBONATE
     Indication: Pneumonia
     Dosage: 100 MILLIGRAM, EVERY HOUR
     Route: 042
     Dates: start: 2006
  252. SODIUM BICARBONATE [Suspect]
     Active Substance: SODIUM BICARBONATE
     Indication: Ill-defined disorder
     Dosage: 10 MILLILITER, EVERY HOUR
     Route: 042
     Dates: start: 2006
  253. SODIUM BICARBONATE [Suspect]
     Active Substance: SODIUM BICARBONATE
     Dosage: 200 MILLIGRAM, EVERY WEEK
     Route: 042
     Dates: start: 2006
  254. SODIUM BICARBONATE [Suspect]
     Active Substance: SODIUM BICARBONATE
     Dosage: 10 MILLILITER, EVERY HOUR
     Route: 042
     Dates: start: 2006
  255. TINZAPARIN [Suspect]
     Active Substance: TINZAPARIN
     Indication: Pneumonia
     Dosage: UNK, QD
     Route: 065
  256. TINZAPARIN [Suspect]
     Active Substance: TINZAPARIN
     Indication: Ill-defined disorder
     Dosage: 3500 MCG, QD
     Route: 065
     Dates: start: 2006
  257. TINZAPARIN [Suspect]
     Active Substance: TINZAPARIN
     Dosage: 3500 MCG, QD
     Route: 065
     Dates: start: 2006
  258. TINZAPARIN [Suspect]
     Active Substance: TINZAPARIN
     Dosage: 3500 MCG, QD (3500 UG, QD, STRUCTURE DOSAGE UNIT REPORTED AS AMCLMICROLITRE(S))
     Route: 065
     Dates: start: 2006
  259. TINZAPARIN [Suspect]
     Active Substance: TINZAPARIN
     Dosage: 3500 MCG, QD (3500 UG, QD, STRUCTURE DOSAGE UNIT REPORTED AS AMCLMICROLITRE(S))
     Route: 065
     Dates: start: 2006
  260. TINZAPARIN [Suspect]
     Active Substance: TINZAPARIN
     Dosage: 3500 MCG, QD (3500 UG, QD, STRUCTURE DOSAGE UNIT REPORTED AS AMCLMICROLITRE(S))
     Route: 065
     Dates: start: 2006
  261. HEPARIN [Suspect]
     Active Substance: HEPARIN SODIUM
     Indication: Ill-defined disorder
     Dosage: 3500 MICROGRAM, QD
     Route: 065
  262. CIPROFLOXACIN HYDROCHLORIDE [Suspect]
     Active Substance: CIPROFLOXACIN HYDROCHLORIDE
     Indication: Ill-defined disorder
     Dosage: UNK
     Route: 065
  263. CIPROFLOXACIN HYDROCHLORIDE [Suspect]
     Active Substance: CIPROFLOXACIN HYDROCHLORIDE
     Dosage: 400 MILLIGRAM, QD
     Route: 042
  264. FUROSEMIDE [Suspect]
     Active Substance: FUROSEMIDE
     Indication: Pneumonia
     Dosage: 40 MILLIGRAM, QD
     Route: 042
  265. FUROSEMIDE [Suspect]
     Active Substance: FUROSEMIDE
     Dosage: 20 MILLIGRAM, QD
     Route: 042
     Dates: start: 2006
  266. THIAMINE HYDROCHLORIDE [Suspect]
     Active Substance: THIAMINE HYDROCHLORIDE
     Indication: Pneumonia
     Dosage: 100 MILLIGRAM, QD
     Route: 042
  267. THIAMINE HYDROCHLORIDE [Suspect]
     Active Substance: THIAMINE HYDROCHLORIDE
     Dosage: 100 MILLIGRAM, QD
     Route: 048
     Dates: start: 2006
  268. VITAMIN K [Suspect]
     Active Substance: PHYTONADIONE
     Indication: Ill-defined disorder
     Dosage: UNK (50 UNITS/50ML)
     Route: 042
     Dates: start: 2006
  269. MIDODRINE HYDROCHLORIDE [Suspect]
     Active Substance: MIDODRINE HYDROCHLORIDE
     Indication: Product used for unknown indication
     Dosage: UNK
     Route: 065
  270. AMOXICILLIN [Concomitant]
     Active Substance: AMOXICILLIN
     Indication: Product used for unknown indication
     Dosage: 250 MILLIGRAM, UNK
     Route: 048
     Dates: start: 20060913
  271. ATROVENT [Concomitant]
     Active Substance: IPRATROPIUM BROMIDE
     Indication: Ill-defined disorder
     Dosage: 1 DOSAGE FORM, PRN
     Route: 048
  272. AMOXICILLIN\CLAVULANIC ACID [Concomitant]
     Active Substance: AMOXICILLIN\CLAVULANIC ACID
     Indication: Product used for unknown indication
     Dosage: 375 MILLIGRAM, TID
     Route: 065
     Dates: start: 20060913
  273. PIPERACILLIN SODIUM\TAZOBACTAM SODIUM [Concomitant]
     Active Substance: PIPERACILLIN SODIUM\TAZOBACTAM SODIUM
     Indication: Ill-defined disorder
     Dosage: 4.5 GRAM, QID
     Route: 042
     Dates: start: 20061004
  274. PIPERACILLIN SODIUM\TAZOBACTAM SODIUM [Concomitant]
     Active Substance: PIPERACILLIN SODIUM\TAZOBACTAM SODIUM
     Indication: Product used for unknown indication
     Dosage: 13.5 GRAM, QD
     Route: 065
  275. PIPERACILLIN SODIUM\TAZOBACTAM SODIUM [Concomitant]
     Active Substance: PIPERACILLIN SODIUM\TAZOBACTAM SODIUM
     Dosage: 13.5 GRAM, QD
     Route: 065
     Dates: start: 2006
  276. PIPERACILLIN SODIUM\TAZOBACTAM SODIUM [Concomitant]
     Active Substance: PIPERACILLIN SODIUM\TAZOBACTAM SODIUM
     Dosage: 54 GRAM, TID
     Route: 042
     Dates: start: 20061004, end: 20061009
  277. PIPERACILLIN SODIUM\TAZOBACTAM SODIUM [Concomitant]
     Active Substance: PIPERACILLIN SODIUM\TAZOBACTAM SODIUM
     Dosage: 4.5 GRAM, QD
     Route: 042
     Dates: start: 20061009
  278. PIPERACILLIN SODIUM\TAZOBACTAM SODIUM [Concomitant]
     Active Substance: PIPERACILLIN SODIUM\TAZOBACTAM SODIUM
     Dosage: 72 GRAM, QD
     Route: 042
     Dates: start: 20061004, end: 20061009
  279. PIPERACILLIN SODIUM\TAZOBACTAM SODIUM [Concomitant]
     Active Substance: PIPERACILLIN SODIUM\TAZOBACTAM SODIUM
     Dosage: 18 GRAM, QD
     Route: 042
     Dates: start: 20061004, end: 20061009
  280. PIPERACILLIN SODIUM\TAZOBACTAM SODIUM [Concomitant]
     Active Substance: PIPERACILLIN SODIUM\TAZOBACTAM SODIUM
     Dosage: 18 GRAM, QD
     Route: 042
     Dates: start: 20061004
  281. PIPERACILLIN SODIUM\TAZOBACTAM SODIUM [Concomitant]
     Active Substance: PIPERACILLIN SODIUM\TAZOBACTAM SODIUM
     Dosage: 18 GRAM, QD
     Route: 042
     Dates: start: 20061004, end: 20061009
  282. PIPERACILLIN SODIUM\TAZOBACTAM SODIUM [Concomitant]
     Active Substance: PIPERACILLIN SODIUM\TAZOBACTAM SODIUM
     Dosage: 5 GRAM, QID (5 G, 1 DOSE 6 HOURS)
     Route: 065
  283. ASPIRIN [Concomitant]
     Active Substance: ASPIRIN
     Indication: Ill-defined disorder
     Dosage: UNK
     Route: 048
  284. CLAVULANATE POTASSIUM [Concomitant]
     Active Substance: CLAVULANATE POTASSIUM
     Indication: Product used for unknown indication
     Dosage: 250 MILLIGRAM, UNK
     Route: 048
  285. CLAVULANATE POTASSIUM [Concomitant]
     Active Substance: CLAVULANATE POTASSIUM
     Dosage: 875 MILLIGRAM, QD
     Route: 065
     Dates: start: 20060913
  286. CLAVULANATE POTASSIUM [Concomitant]
     Active Substance: CLAVULANATE POTASSIUM
     Dosage: 2625 MILLIGRAM, QD
     Route: 065
     Dates: start: 20060913
  287. CLAVULANATE POTASSIUM [Concomitant]
     Active Substance: CLAVULANATE POTASSIUM
     Dosage: 375 MILLIGRAM, TID
     Route: 065
     Dates: start: 20060913
  288. CLAVULANATE POTASSIUM [Concomitant]
     Active Substance: CLAVULANATE POTASSIUM
     Dosage: 1125 MILLIGRAM, QD
     Route: 065
     Dates: start: 20060913
  289. ASPIRIN [Concomitant]
     Active Substance: ASPIRIN
     Indication: Ill-defined disorder
     Dosage: UNK
     Route: 048
  290. CHLORPHENIRAMINE [Concomitant]
     Active Substance: CHLORPHENIRAMINE
     Indication: Toxic epidermal necrolysis
     Dosage: 40 MILLIGRAM, QD
     Route: 042
  291. CIPROFLOXACIN [Concomitant]
     Active Substance: CIPROFLOXACIN
     Indication: Ill-defined disorder
     Dosage: 400 MILLIGRAM, QD
     Route: 042
  292. CIPROFLOXACIN [Concomitant]
     Active Substance: CIPROFLOXACIN
     Dosage: 400 MILLIGRAM, QD
     Route: 042
  293. CIPROFLOXACIN [Concomitant]
     Active Substance: CIPROFLOXACIN
     Dosage: 400 MILLIGRAM, QD
     Route: 042
  294. PANTOPRAZOLE [Concomitant]
     Active Substance: PANTOPRAZOLE
     Indication: Ill-defined disorder
     Dosage: 40 MILLIGRAM, QD
     Route: 042
  295. AMOXICILLIN\CLAVULANATE POTASSIUM [Concomitant]
     Active Substance: AMOXICILLIN\CLAVULANATE POTASSIUM
     Indication: Ill-defined disorder
     Dosage: 250 MILLIGRAM, UNK
     Route: 065
  296. AMOXICILLIN\CLAVULANATE POTASSIUM [Concomitant]
     Active Substance: AMOXICILLIN\CLAVULANATE POTASSIUM
     Dosage: 375 MILLIGRAM, TID
     Route: 065
     Dates: start: 20060913
  297. AMOXICILLIN\CLAVULANATE POTASSIUM [Concomitant]
     Active Substance: AMOXICILLIN\CLAVULANATE POTASSIUM
     Dosage: 2625 MILLIGRAM, QD
     Route: 065
     Dates: start: 20060913
  298. AMOXICILLIN\CLAVULANATE POTASSIUM [Concomitant]
     Active Substance: AMOXICILLIN\CLAVULANATE POTASSIUM
     Dosage: 250 MILLIGRAM, UNK
     Route: 048
  299. AMOXICILLIN\CLAVULANATE POTASSIUM [Concomitant]
     Active Substance: AMOXICILLIN\CLAVULANATE POTASSIUM
     Dosage: 375 MILLIGRAM, TID
     Route: 065
     Dates: start: 20060913
  300. ERYTHROMYCIN [Concomitant]
     Active Substance: ERYTHROMYCIN
     Indication: Ill-defined disorder
     Dosage: 250 MILLIGRAM, UNK
     Route: 050
  301. ERYTHROMYCIN [Concomitant]
     Active Substance: ERYTHROMYCIN
     Dosage: 250 MILLIGRAM, QD
     Route: 050
  302. ERYTHROMYCIN [Concomitant]
     Active Substance: ERYTHROMYCIN
     Dosage: 250 MILLIGRAM, NASOGASTRIC ROUTE
     Route: 050
  303. IPRATROPIUM BROMIDE [Concomitant]
     Active Substance: IPRATROPIUM BROMIDE
     Indication: Product used for unknown indication
     Dosage: UNK
     Route: 065
  304. VANCOMYCIN [Concomitant]
     Active Substance: VANCOMYCIN
     Indication: Ill-defined disorder
     Dosage: 1 GRAM, QD (DAILY)
     Route: 042
  305. TRICLOSAN [Concomitant]
     Active Substance: TRICLOSAN
     Indication: Ill-defined disorder
     Dosage: 1 GRAM, QD
     Route: 042
  306. ZOPICLONE [Concomitant]
     Active Substance: ZOPICLONE
     Indication: Ill-defined disorder
     Dosage: UNK
     Route: 048
  307. METOCLOPRAMIDE [Concomitant]
     Active Substance: METOCLOPRAMIDE
     Indication: Ill-defined disorder
     Dosage: 10 MILLIGRAM, QD
     Route: 042
  308. METOCLOPRAMIDE [Concomitant]
     Active Substance: METOCLOPRAMIDE
     Dosage: 10 MILLIGRAM, QD
     Route: 042
  309. MIDODRINE [Concomitant]
     Active Substance: MIDODRINE
     Indication: Ill-defined disorder
     Dosage: UNK
     Route: 048
  310. CIPROFLOXACIN HYDROCHLORIDE [Concomitant]
     Active Substance: CIPROFLOXACIN HYDROCHLORIDE
     Indication: Ill-defined disorder
     Dosage: 400 MILLIGRAM, QD
     Route: 042
  311. CIPROFLOXACIN LACTATE [Concomitant]
     Active Substance: CIPROFLOXACIN LACTATE
     Indication: Ill-defined disorder
     Dosage: 400 MILLIGRAM, QD
     Route: 042

REACTIONS (4)
  - Toxic epidermal necrolysis [Unknown]
  - Drug hypersensitivity [Unknown]
  - Product use in unapproved indication [Unknown]
  - Off label use [Unknown]

NARRATIVE: CASE EVENT DATE: 20060101
